FAERS Safety Report 4322093-2 (Version None)
Quarter: 2004Q1

REPORT INFORMATION
  Report Type: 
  Country: None (occurrence: None)
  Receive Date: 20040323
  Receipt Date: 20040224
  Transmission Date: 20041129
  Serious: Yes (Hospitalization)
  Sender: FDA-Public Use
  Company Number: RO-GLAXOSMITHKLINE-B0324502A

PATIENT
  Age: 69 Year
  Sex: Male
  Weight: 97 kg

DRUGS (5)
  1. SERETIDE [Suspect]
     Indication: CHRONIC OBSTRUCTIVE AIRWAYS DISEASE
     Route: 055
     Dates: start: 20040207
  2. PREDNISOLONE [Concomitant]
     Indication: CHRONIC OBSTRUCTIVE AIRWAYS DISEASE
     Dosage: 30MG PER DAY
     Route: 048
     Dates: start: 20031118, end: 20031201
  3. SALMETEROL XINAFOATE [Concomitant]
     Indication: CHRONIC OBSTRUCTIVE AIRWAYS DISEASE
     Dosage: 50MCG TWICE PER DAY
     Route: 055
     Dates: start: 20031117, end: 20031201
  4. PREDNISOLONE [Concomitant]
     Dosage: 30MG PER DAY
     Route: 048
     Dates: start: 20040126, end: 20040206
  5. SALMETEROL XINAFOATE [Concomitant]
     Dosage: 50MCG TWICE PER DAY
     Route: 055
     Dates: start: 20040125, end: 20040206

REACTIONS (10)
  - BLOOD PRESSURE INCREASED [None]
  - CARDIAC FAILURE CONGESTIVE [None]
  - CHRONIC OBSTRUCTIVE AIRWAYS DISEASE EXACERBATED [None]
  - COUGH [None]
  - DYSPNOEA EXACERBATED [None]
  - HYPERTENSION [None]
  - MYOCARDIAL ISCHAEMIA [None]
  - OBESITY [None]
  - OEDEMA PERIPHERAL [None]
  - PYREXIA [None]
